FAERS Safety Report 22282571 (Version 3)
Quarter: 2023Q2

REPORT INFORMATION
  Report Type: Report from Study
  Country: CA (occurrence: CA)
  Receive Date: 20230504
  Receipt Date: 20230605
  Transmission Date: 20230721
  Serious: Yes (Other)
  Sender: FDA-Public Use
  Company Number: CA-TAKEDA-2023TUS043488

PATIENT
  Age: 39 Year
  Sex: Female

DRUGS (2)
  1. VEDOLIZUMAB [Suspect]
     Active Substance: VEDOLIZUMAB
     Indication: Crohn^s disease
     Dosage: 300 MILLIGRAM
     Route: 042
     Dates: start: 20221111
  2. PENTASA [Concomitant]
     Active Substance: MESALAMINE
     Dosage: 2.4 GRAM
     Dates: start: 2021

REACTIONS (7)
  - Gestational diabetes [Not Recovered/Not Resolved]
  - Abdominal discomfort [Unknown]
  - Frequent bowel movements [Unknown]
  - Faeces soft [Unknown]
  - Pregnancy [Unknown]
  - Abdominal pain [Unknown]
  - Flatulence [Unknown]
